FAERS Safety Report 20114549 (Version 1)
Quarter: 2021Q4

REPORT INFORMATION
  Report Type: Spontaneous
  Country: US (occurrence: US)
  Receive Date: 20211125
  Receipt Date: 20211125
  Transmission Date: 20220303
  Serious: No
  Sender: FDA-Public Use
  Company Number: US-SA-SAC20211117001454

PATIENT
  Age: 65 Year
  Sex: Male

DRUGS (1)
  1. DUPIXENT [Suspect]
     Active Substance: DUPILUMAB
     Indication: Dermatitis atopic
     Dosage: 300 MG, Q2W
     Route: 058
     Dates: start: 20210720

REACTIONS (3)
  - Sleep disorder [Unknown]
  - Dermatitis atopic [Recovering/Resolving]
  - Therapeutic response decreased [Unknown]
